FAERS Safety Report 15316388 (Version 1)
Quarter: 2018Q3

REPORT INFORMATION
  Report Type: Spontaneous
  Country: US (occurrence: US)
  Receive Date: 20180816
  Receipt Date: 20180816
  Transmission Date: 20181010
  Serious: Yes (Life-Threatening)
  Sender: FDA-Public Use
  Company Number: None

PATIENT
  Age: 66 Year
  Sex: Male

DRUGS (1)
  1. WARFARIN [Suspect]
     Active Substance: WARFARIN

REACTIONS (6)
  - Cerebellar haemorrhage [None]
  - Respiratory distress [None]
  - Hydrocephalus [None]
  - Hypertensive emergency [None]
  - Mental status changes [None]
  - Sepsis [None]
